FAERS Safety Report 6968298-3 (Version None)
Quarter: 2010Q3

REPORT INFORMATION
  Report Type: 
  Country: None (occurrence: None)
  Receive Date: 20100907
  Receipt Date: 20100827
  Transmission Date: 20110219
  Serious: Yes (Other)
  Sender: FDA-Public Use
  Company Number: US-JNJFOC-20100809307

PATIENT
  Sex: Male
  Weight: 118 kg

DRUGS (21)
  1. GOLIMUMAB [Suspect]
     Indication: RHEUMATOID ARTHRITIS
     Route: 058
  2. GOLIMUMAB [Suspect]
     Route: 058
  3. GOLIMUMAB [Suspect]
     Route: 058
  4. GLUCOSAMINE [Concomitant]
     Route: 048
  5. HYDROCHLOROTHIAZIDE [Concomitant]
     Route: 048
  6. ENALAPRIL [Concomitant]
     Route: 048
  7. PROCARDIA XL [Concomitant]
     Route: 048
  8. ATENOLOL [Concomitant]
     Route: 048
  9. NIASPAN [Concomitant]
     Route: 048
  10. ASPIRIN [Concomitant]
     Route: 048
  11. DICLOFENAC [Concomitant]
     Route: 048
  12. GARLIC [Concomitant]
     Route: 048
  13. FOLIC ACID [Concomitant]
     Route: 048
  14. ZETIA [Concomitant]
     Route: 048
  15. PRILOSEC [Concomitant]
     Route: 048
  16. FERROUS SULFATE [Concomitant]
     Route: 048
  17. METFORMIN [Concomitant]
     Route: 048
  18. ROXICODONE [Concomitant]
     Route: 048
  19. PREDNISONE [Concomitant]
     Route: 048
  20. PREDNISONE [Concomitant]
     Route: 048
  21. METHOTREXATE [Concomitant]
     Route: 048

REACTIONS (1)
  - T-CELL TYPE ACUTE LEUKAEMIA [None]
